FAERS Safety Report 14449525 (Version 3)
Quarter: 2018Q2

REPORT INFORMATION
  Report Type: Report from Study
  Country: FR (occurrence: FR)
  Receive Date: 20180127
  Receipt Date: 20180503
  Transmission Date: 20180711
  Serious: Yes (Life-Threatening, Hospitalization)
  Sender: FDA-Public Use
  Company Number: FR-AMGEN-FRACT2018010557

PATIENT
  Age: 68 Year
  Sex: Male

DRUGS (6)
  1. NORADRENALINE [Concomitant]
     Active Substance: NOREPINEPHRINE
     Dosage: UNK
     Dates: end: 20180119
  2. 5-FU [Suspect]
     Active Substance: FLUOROURACIL
     Indication: ANAL SQUAMOUS CELL CARCINOMA
     Dosage: 800 MG, EVERY ONE CYCLE
     Route: 040
     Dates: start: 20171120, end: 20171218
  3. XATRAL [Concomitant]
     Active Substance: ALFUZOSIN
  4. 5-FU [Suspect]
     Active Substance: FLUOROURACIL
     Dosage: 3200 MG, EVERY ONE CYCLE
     Route: 041
     Dates: start: 20171120, end: 20171218
  5. AMETYCINE [Suspect]
     Active Substance: MITOMYCIN
     Indication: ANAL SQUAMOUS CELL CARCINOMA
     Dosage: 20 MG, EVERY ONE CYCLE
     Route: 065
     Dates: start: 20171120, end: 20171218
  6. PANITUMUMAB [Suspect]
     Active Substance: PANITUMUMAB
     Indication: ANAL SQUAMOUS CELL CARCINOMA
     Dosage: 246 MG, EVERY ONE CYCLE
     Route: 065
     Dates: start: 20171120

REACTIONS (1)
  - Septic shock [Recovered/Resolved with Sequelae]

NARRATIVE: CASE EVENT DATE: 20180112
